FAERS Safety Report 20807328 (Version 1)
Quarter: 2022Q2

REPORT INFORMATION
  Report Type: Spontaneous
  Country: US (occurrence: None)
  Receive Date: 20220509
  Receipt Date: 20220509
  Transmission Date: 20220721
  Serious: Yes (Death)
  Sender: FDA-Public Use
  Company Number: None

PATIENT
  Age: 79 Year
  Sex: Male

DRUGS (1)
  1. MYCOPHENOLATE MOFETIL [Suspect]
     Active Substance: MYCOPHENOLATE MOFETIL
     Indication: Arteritis
     Dosage: 1000MG ONCE DAILY ORAL?
     Route: 048
     Dates: start: 20211005

REACTIONS (1)
  - Death [None]

NARRATIVE: CASE EVENT DATE: 20220402
